FAERS Safety Report 7768078-5 (Version None)
Quarter: 2011Q3

REPORT INFORMATION
  Report Type: 
  Country: None (occurrence: None)
  Receive Date: 20110922
  Receipt Date: 20110915
  Transmission Date: 20111222
  Serious: Yes (Life-Threatening, Hospitalization)
  Sender: FDA-Public Use
  Company Number: US-PFIZER INC-2010160308

PATIENT
  Age: 30 Year
  Sex: Female

DRUGS (3)
  1. DILTIAZEM HCL [Suspect]
  2. METOPROLOL [Suspect]
  3. AMIODARONE HCL [Suspect]

REACTIONS (5)
  - INTENTIONAL OVERDOSE [None]
  - MULTIPLE DRUG OVERDOSE INTENTIONAL [None]
  - CONFUSIONAL STATE [None]
  - CARDIOGENIC SHOCK [None]
  - BLOOD GLUCOSE INCREASED [None]
